FAERS Safety Report 14169514 (Version 1)
Quarter: 2017Q4

REPORT INFORMATION
  Report Type: Spontaneous
  Country: US (occurrence: US)
  Receive Date: 20171107
  Receipt Date: 20171107
  Transmission Date: 20180321
  Serious: Yes (Other)
  Sender: FDA-Public Use
  Company Number: None

PATIENT
  Age: 53 Year
  Sex: Female
  Weight: 49.5 kg

DRUGS (3)
  1. LYRICA [Suspect]
     Active Substance: PREGABALIN
     Indication: CERVICAL SPINAL STENOSIS
     Route: 048
     Dates: start: 20160915, end: 20171106
  2. XANAX [Concomitant]
     Active Substance: ALPRAZOLAM
  3. VICODIN [Concomitant]
     Active Substance: ACETAMINOPHEN\HYDROCODONE BITARTRATE

REACTIONS (4)
  - Anger [None]
  - Aggression [None]
  - Drug hypersensitivity [None]
  - Therapy change [None]

NARRATIVE: CASE EVENT DATE: 20171030
